FAERS Safety Report 11283621 (Version 2)
Quarter: 2015Q3

REPORT INFORMATION
  Report Type: Spontaneous
  Country: US (occurrence: US)
  Receive Date: 20150720
  Receipt Date: 20150825
  Transmission Date: 20151125
  Serious: No
  Sender: FDA-Public Use
  Company Number: US-PFIZER INC-2015235311

PATIENT
  Age: 59 Year
  Sex: Female
  Weight: 52 kg

DRUGS (4)
  1. ALLEGRA [Concomitant]
     Active Substance: FEXOFENADINE HYDROCHLORIDE
     Dosage: 180 MG, DAILY
  2. PROZAC [Concomitant]
     Active Substance: FLUOXETINE HYDROCHLORIDE
     Dosage: UNK
  3. ZITHROMAX [Suspect]
     Active Substance: AZITHROMYCIN DIHYDRATE
     Indication: ASTHMA
     Dosage: TWO TO FIRST DAY AND THEN ONE FOR FOUR DAYS AND THEN OVER
     Route: 048
     Dates: start: 2012
  4. VENTOLIN [Concomitant]
     Active Substance: ALBUTEROL SULFATE
     Indication: ASTHMA
     Dosage: UNK

REACTIONS (7)
  - Laryngitis [Unknown]
  - Depression [Unknown]
  - Feeling abnormal [Unknown]
  - Disturbance in attention [Unknown]
  - Malaise [Unknown]
  - Weight decreased [Unknown]
  - Activities of daily living impaired [Unknown]

NARRATIVE: CASE EVENT DATE: 2012
